FAERS Safety Report 25519001 (Version 1)
Quarter: 2025Q3

REPORT INFORMATION
  Report Type: Spontaneous
  Country: US (occurrence: US)
  Receive Date: 20250704
  Receipt Date: 20250704
  Transmission Date: 20251021
  Serious: No
  Sender: RADIUS PHARM
  Company Number: US-RADIUS HEALTH INC.-2025US001282

PATIENT

DRUGS (3)
  1. TYMLOS [Suspect]
     Active Substance: ABALOPARATIDE
     Indication: Osteoporosis
     Dosage: 80 MICROGRAM, QD
     Route: 058
     Dates: start: 20250110, end: 20250206
  2. REPATHA [Concomitant]
     Active Substance: EVOLOCUMAB
     Indication: Blood cholesterol
     Route: 065
     Dates: start: 20250110, end: 20250206
  3. ATENOLOL [Concomitant]
     Active Substance: ATENOLOL
     Indication: Mitral valve prolapse
     Route: 065

REACTIONS (4)
  - Spinal pain [Recovered/Resolved]
  - Chest pain [Recovered/Resolved]
  - Heart rate increased [Recovered/Resolved]
  - Radicular pain [Recovered/Resolved]

NARRATIVE: CASE EVENT DATE: 20250206
